FAERS Safety Report 9227435 (Version 1)
Quarter: 2013Q2

REPORT INFORMATION
  Report Type: Spontaneous
  Country: US (occurrence: None)
  Receive Date: 20130411
  Receipt Date: 20130411
  Transmission Date: 20140414
  Serious: Yes (Hospitalization)
  Sender: FDA-Public Use
  Company Number: None

PATIENT
  Age: 56 Year
  Sex: Male
  Weight: 70 kg

DRUGS (2)
  1. ASPIRIN [Suspect]
     Indication: CORONARY ARTERY DISEASE
     Dosage: RECENT USE DAILY PO
     Route: 048
  2. PLAVIX [Suspect]
     Dosage: RECENT USE 75 MG DAILY PO
     Route: 048

REACTIONS (4)
  - Duodenal ulcer [None]
  - Anaemia [None]
  - Helicobacter gastritis [None]
  - Upper gastrointestinal haemorrhage [None]
